FAERS Safety Report 12265131 (Version 1)
Quarter: 2016Q2

REPORT INFORMATION
  Report Type: Spontaneous
  Country: US (occurrence: US)
  Receive Date: 20160413
  Receipt Date: 20160413
  Transmission Date: 20160815
  Serious: No
  Sender: FDA-Public Use
  Company Number: ALCN2016US002587

PATIENT
  Sex: Male

DRUGS (1)
  1. TRAVATAN Z [Suspect]
     Active Substance: TRAVOPROST
     Indication: DIPLOPIA
     Dosage: 1 GTT, QHS
     Route: 047
     Dates: start: 2015, end: 201602

REACTIONS (2)
  - Prostatomegaly [Not Recovered/Not Resolved]
  - Product use issue [Unknown]
